FAERS Safety Report 6269795-9 (Version None)
Quarter: 2009Q3

REPORT INFORMATION
  Report Type: 
  Country: None (occurrence: None)
  Receive Date: 20090716
  Receipt Date: 20090709
  Transmission Date: 20100115
  Serious: Yes (Life-Threatening, Hospitalization)
  Sender: FDA-Public Use
  Company Number: US-JNJFOC-20090702922

PATIENT
  Age: 50 Year
  Sex: Male

DRUGS (2)
  1. ULTRAM [Suspect]
     Route: 065
  2. ULTRAM [Suspect]
     Indication: BACK PAIN
     Route: 065

REACTIONS (5)
  - DEPRESSED LEVEL OF CONSCIOUSNESS [None]
  - MYOCARDIAL INFARCTION [None]
  - OVERDOSE [None]
  - PNEUMONIA ASPIRATION [None]
  - VENTRICULAR TACHYCARDIA [None]
